FAERS Safety Report 9846149 (Version 1)
Quarter: 2013Q4

REPORT INFORMATION
  Report Type: Spontaneous
  Country: US (occurrence: None)
  Receive Date: 20131223
  Receipt Date: 20131223
  Transmission Date: 20140711
  Serious: Yes (Hospitalization)
  Sender: FDA-Public Use
  Company Number: DSA_61085_2012

PATIENT
  Age: 41 Year
  Sex: Male

DRUGS (1)
  1. XENAZINE [Suspect]
     Indication: HUNTINGTON^S DISEASE
     Dosage: 50 MG, 2 IN 1 D, ORAL
     Route: 048
     Dates: start: 20120717

REACTIONS (2)
  - Depression [None]
  - Insomnia [None]
